FAERS Safety Report 10367336 (Version 3)
Quarter: 2014Q4

REPORT INFORMATION
  Report Type: Spontaneous
  Country: US (occurrence: US)
  Receive Date: 20140807
  Receipt Date: 20141007
  Transmission Date: 20150528
  Serious: Yes (Hospitalization)
  Sender: FDA-Public Use
  Company Number: US-SUN PHARMACEUTICAL INDUSTRIES LTD-2014SUN01768

PATIENT

DRUGS (10)
  1. AMARYL [Concomitant]
     Active Substance: GLIMEPIRIDE
     Dosage: 1 DF, OD
  2. ASPIRIN. [Concomitant]
     Active Substance: ASPIRIN
     Dosage: 1 DF, OD
  3. ZOCOR [Concomitant]
     Active Substance: SIMVASTATIN
     Dosage: 1 DF AT BEDTIME
  4. VIAGRA [Concomitant]
     Active Substance: SILDENAFIL CITRATE
     Dosage: AS DIRECTED
  5. TESTOSTERONE  CYPIONATE INJECTION; 100 MG/ML [Suspect]
     Active Substance: TESTOSTERONE CYPIONATE
     Dosage: 1 ML (SECOND DOSE) IN THE LEFT GLUTEUS
     Route: 030
     Dates: start: 20140703, end: 20140703
  6. ZOVIRAX [Concomitant]
     Active Substance: ACYCLOVIR
     Dosage: 1 DF, OD
  7. PRINIVIL [Concomitant]
     Active Substance: LISINOPRIL
     Dosage: 10 MG, OD
  8. VEXOL [Concomitant]
     Active Substance: RIMEXOLONE
     Dosage: AS DIRECTED
  9. TESTOSTERONE  CYPIONATE INJECTION; 100 MG/ML [Suspect]
     Active Substance: TESTOSTERONE CYPIONATE
     Indication: ERECTILE DYSFUNCTION
     Dosage: 1 ML (FIRST DOSE) IN THE RIGHT GLUTEUS
     Route: 030
     Dates: start: 20140620
  10. GLUCOPHAGE [Concomitant]
     Active Substance: METFORMIN HYDROCHLORIDE
     Dosage: 1 DF, BID

REACTIONS (3)
  - Arthralgia [Recovering/Resolving]
  - Back pain [Recovering/Resolving]
  - Streptococcal sepsis [Recovering/Resolving]

NARRATIVE: CASE EVENT DATE: 20140703
